FAERS Safety Report 18744922 (Version 1)
Quarter: 2021Q1

REPORT INFORMATION
  Report Type: Spontaneous
  Country: US (occurrence: US)
  Receive Date: 20210114
  Receipt Date: 20210114
  Transmission Date: 20210419
  Serious: Yes (Other)
  Sender: FDA-Public Use
  Company Number: None

PATIENT
  Age: 46 Year
  Sex: Male
  Weight: 79.5 kg

DRUGS (1)
  1. CHLORHEXIDINE GLUCONATE. [Suspect]
     Active Substance: CHLORHEXIDINE GLUCONATE
     Indication: ANTIBIOTIC PROPHYLAXIS
     Route: 002
     Dates: start: 20201010, end: 20201028

REACTIONS (12)
  - Recalled product [None]
  - Product quality issue [None]
  - Multiple-drug resistance [None]
  - Nausea [None]
  - Pseudomonas infection [None]
  - Staphylococcal infection [None]
  - Lung consolidation [None]
  - Sputum culture positive [None]
  - Burkholderia infection [None]
  - Pleural effusion [None]
  - Back pain [None]
  - Pneumothorax [None]

NARRATIVE: CASE EVENT DATE: 20201011
